FAERS Safety Report 6222067-0 (Version None)
Quarter: 2009Q2

REPORT INFORMATION
  Report Type: 
  Country: None (occurrence: None)
  Receive Date: 20090608
  Receipt Date: 20090608
  Transmission Date: 20091009
  Serious: Yes (Life-Threatening)
  Sender: FDA-Public Use
  Company Number: None

PATIENT
  Age: 61 Year
  Sex: Male
  Weight: 93.8946 kg

DRUGS (1)
  1. EPZICOM [Suspect]
     Indication: HIV TEST POSITIVE
     Dosage: ONE TABLET ONCE A DAY  ONCE PER DAY PO
     Route: 048
     Dates: start: 20090604, end: 20090605

REACTIONS (4)
  - ABDOMINAL PAIN [None]
  - DYSPNOEA [None]
  - NAUSEA [None]
  - RASH [None]
